FAERS Safety Report 14673233 (Version 1)
Quarter: 2018Q1

REPORT INFORMATION
  Report Type: Spontaneous
  Country: AU (occurrence: AU)
  Receive Date: 20180323
  Receipt Date: 20180323
  Transmission Date: 20180509
  Serious: Yes (Hospitalization, Other)
  Sender: FDA-Public Use
  Company Number: AU-ACCORD-065096

PATIENT
  Age: 20 Year
  Sex: Female
  Weight: 130 kg

DRUGS (9)
  1. VALPROATE [Concomitant]
     Active Substance: VALPROIC ACID
  2. PANTOPRAZOLE [Suspect]
     Active Substance: PANTOPRAZOLE
     Indication: PRODUCT USED FOR UNKNOWN INDICATION
     Dosage: DOSAGE: 40 MG, TID
     Dates: start: 201606
  3. METFORMIN [Suspect]
     Active Substance: METFORMIN HYDROCHLORIDE
     Indication: PRODUCT USED FOR UNKNOWN INDICATION
     Dosage: DOSAGE: 250 MG, BID
     Dates: start: 201604
  4. QUETIAPINE. [Suspect]
     Active Substance: QUETIAPINE
     Indication: PRODUCT USED FOR UNKNOWN INDICATION
     Dosage: ALSO RECEIVED 2ND REGIMEN FROM 20-APR-2016 TO UNKNOWN AT THE DOSE OF 7.5 GM (OVERDOSE)
  5. CLOZARIL [Suspect]
     Active Substance: CLOZAPINE
     Indication: SCHIZOPHRENIA
     Dosage: 250 MG, PM ON UNKNOWN DATE IN-2016
     Route: 048
     Dates: start: 20160510, end: 20160623
  6. FLUVOXAMINE [Concomitant]
     Active Substance: FLUVOXAMINE
  7. ZUCLOPENTHIXOL/ZUCLOPENTHIXOL ACETATE/ZUCLOPENTHIXOL DECANOATE/ZUCLOPENTHIXOL HYDROCHLORIDE [Concomitant]
  8. PARACETAMOL [Concomitant]
     Active Substance: ACETAMINOPHEN
  9. COLOXYL WITH SENNA [Suspect]
     Active Substance: DOCUSATE\SENNOSIDES
     Indication: PRODUCT USED FOR UNKNOWN INDICATION
     Dates: start: 201606

REACTIONS (13)
  - Neutropenia [Recovered/Resolved]
  - Thrombocytopenia [Unknown]
  - Gamma-glutamyltransferase increased [Recovering/Resolving]
  - Mental status changes [Unknown]
  - Overdose [Unknown]
  - Alanine aminotransferase increased [Recovered/Resolved]
  - Generalised tonic-clonic seizure [Unknown]
  - Anaemia [Unknown]
  - Leukopenia [Recovered/Resolved]
  - Aspartate aminotransferase increased [Recovered/Resolved]
  - Blood alkaline phosphatase increased [Recovering/Resolving]
  - Weight increased [Unknown]
  - Drug effect decreased [Unknown]

NARRATIVE: CASE EVENT DATE: 2016
